FAERS Safety Report 18509082 (Version 4)
Quarter: 2021Q2

REPORT INFORMATION
  Report Type: Spontaneous
  Country: US (occurrence: US)
  Receive Date: 20201117
  Receipt Date: 20210407
  Transmission Date: 20210717
  Serious: Yes (Other)
  Sender: FDA-Public Use
  Company Number: US-AUROBINDO-AUR-APL-2020-052396

PATIENT
  Sex: Female

DRUGS (4)
  1. HYDROCODONE BITARTRATE AND ACETAMINOPHEN TABLETS USP 7.5 MG/325 MG [Suspect]
     Active Substance: ACETAMINOPHEN\HYDROCODONE BITARTRATE
     Indication: NEUROPATHY PERIPHERAL
     Dosage: 2 DOSAGE FORM (02 PILLS)
     Route: 065
     Dates: start: 20201006
  2. HYDROCODONE BITARTRATE AND ACETAMINOPHEN TABLETS USP 7.5 MG/325 MG [Suspect]
     Active Substance: ACETAMINOPHEN\HYDROCODONE BITARTRATE
     Indication: ARTHRALGIA
  3. HYDROCODONE BITARTRATE AND ACETAMINOPHEN TABLETS USP 7.5 MG/325 MG [Suspect]
     Active Substance: ACETAMINOPHEN\HYDROCODONE BITARTRATE
     Indication: MUSCLE SPASMS
  4. HYDROCODONE BITARTRATE AND ACETAMINOPHEN TABLETS USP 7.5 MG/325 MG [Suspect]
     Active Substance: ACETAMINOPHEN\HYDROCODONE BITARTRATE
     Indication: PAIN IN EXTREMITY

REACTIONS (6)
  - Product container seal issue [Unknown]
  - Product physical issue [Unknown]
  - Product tampering [Unknown]
  - Product solubility abnormal [Unknown]
  - Pain [Unknown]
  - Drug ineffective [Unknown]
